FAERS Safety Report 8328166 (Version 2)
Quarter: 2014Q1

REPORT INFORMATION
  Report Type: Report from Study
  Country: US (occurrence: US)
  Receive Date: 20120109
  Receipt Date: 20140108
  Transmission Date: 20141002
  Serious: Yes (Life-Threatening, Other)
  Sender: FDA-Public Use
  Company Number: US-ROCHE-1021649

PATIENT
  Sex: 0

DRUGS (6)
  1. RITUXIMAB [Suspect]
     Indication: WALDENSTROM^S MACROGLOBULINAEMIA
     Route: 042
  2. RITUXIMAB [Suspect]
     Dosage: 1, 8, 15, AND 22 EVERY 28 DAYS AT CYCLE 1 AND 4 ONLY
     Route: 042
  3. EVEROLIMUS [Suspect]
     Indication: WALDENSTROM^S MACROGLOBULINAEMIA
     Route: 048
  4. EVEROLIMUS [Suspect]
     Route: 065
  5. BORTEZOMIB [Suspect]
     Indication: WALDENSTROM^S MACROGLOBULINAEMIA
     Route: 042
  6. BORTEZOMIB [Suspect]
     Dosage: DAY 1, 8, 15 EVERY 28 DAYS
     Route: 042

REACTIONS (16)
  - Neutropenia [Unknown]
  - Leukopenia [Unknown]
  - Thrombocytopenia [Unknown]
  - Lymphopenia [Unknown]
  - Hypertriglyceridaemia [Unknown]
  - Anaemia [Unknown]
  - Pneumonitis [Unknown]
  - Neuropathy peripheral [Unknown]
  - Herpes zoster [Unknown]
  - Hyperglycaemia [Unknown]
  - Hypernatraemia [Unknown]
  - Endocarditis bacterial [Unknown]
  - Cardiac failure congestive [Unknown]
  - Deafness [Unknown]
  - Small intestinal obstruction [Unknown]
  - Inguinal hernia, obstructive [Unknown]
